FAERS Safety Report 7357473-4 (Version None)
Quarter: 2011Q1

REPORT INFORMATION
  Report Type: 
  Country: None (occurrence: None)
  Receive Date: 20110317
  Receipt Date: 20110203
  Transmission Date: 20110831
  Serious: Yes (Hospitalization)
  Sender: FDA-Public Use
  Company Number: US-BAYER-201029516NA

PATIENT
  Sex: Female
  Weight: 73.469 kg

DRUGS (2)
  1. YAZ [Suspect]
     Indication: CONTRACEPTION
     Route: 048
     Dates: start: 20080401, end: 20081201
  2. NEXIUM [Concomitant]

REACTIONS (8)
  - GALLBLADDER DISORDER [None]
  - VOMITING [None]
  - CHOLELITHIASIS [None]
  - CHOLECYSTITIS CHRONIC [None]
  - NAUSEA [None]
  - CHOLESTEROSIS [None]
  - CHEST PAIN [None]
  - ABDOMINAL PAIN UPPER [None]
